FAERS Safety Report 7555334-9 (Version None)
Quarter: 2011Q2

REPORT INFORMATION
  Report Type: 
  Country: None (occurrence: None)
  Receive Date: 20110617
  Receipt Date: 20110606
  Transmission Date: 20111010
  Serious: Yes (Hospitalization, Other)
  Sender: FDA-Public Use
  Company Number: PHHY2011US07569

PATIENT
  Sex: Female
  Weight: 94 kg

DRUGS (22)
  1. EXJADE [Suspect]
     Indication: MYELODYSPLASTIC SYNDROME
     Dosage: 2500 MG DAILY
     Route: 048
     Dates: start: 20090902
  2. POTASSIUM [Concomitant]
  3. COREG [Concomitant]
  4. LASIX [Concomitant]
  5. LEVATOL [Concomitant]
  6. QUINAPRIL HCL [Concomitant]
  7. NEXIUM [Concomitant]
  8. MECLIZINE [Concomitant]
  9. NITROGLYCERIN [Concomitant]
  10. FUROSEMIDE [Concomitant]
  11. ANTIBIOTICS [Concomitant]
     Dosage: UNK
  12. CENTRUM SILVER [Concomitant]
  13. VITAMIN D [Concomitant]
  14. SPIRONOLACTONE [Concomitant]
  15. GABAPENTIN [Concomitant]
  16. LIPOFLAVONOID [Concomitant]
  17. ASPIRIN [Concomitant]
  18. VICODIN [Concomitant]
  19. LEVEMIR [Concomitant]
  20. AMBIEN [Concomitant]
  21. VICOPROFEN [Concomitant]
  22. FLEXPEN [Concomitant]

REACTIONS (10)
  - PELVIC FRACTURE [None]
  - PHARYNGITIS [None]
  - FALL [None]
  - KIDNEY INFECTION [None]
  - ALANINE AMINOTRANSFERASE INCREASED [None]
  - ABDOMINAL DISCOMFORT [None]
  - URINARY TRACT INFECTION [None]
  - LIVER FUNCTION TEST ABNORMAL [None]
  - BLOOD BILIRUBIN INCREASED [None]
  - ASPARTATE AMINOTRANSFERASE INCREASED [None]
